FAERS Safety Report 7447337-X (Version None)
Quarter: 2011Q2

REPORT INFORMATION
  Report Type: 
  Country: None (occurrence: None)
  Receive Date: 20110429
  Receipt Date: 20090603
  Transmission Date: 20111010
  Serious: Yes (Other)
  Sender: FDA-Public Use
  Company Number: DE-ROCHE-773939

PATIENT
  Age: 86 Year
  Sex: Female

DRUGS (2)
  1. AVASTIN [Suspect]
     Route: 065
  2. RANIBIZUMAB [Suspect]
     Route: 031

REACTIONS (4)
  - RETINAL INJURY [None]
  - VISUAL ACUITY REDUCED [None]
  - BLADDER DISORDER [None]
  - CARDIOVASCULAR DISORDER [None]
